FAERS Safety Report 20777638 (Version 1)
Quarter: 2022Q2

REPORT INFORMATION
  Report Type: Spontaneous
  Country: BE (occurrence: None)
  Receive Date: 20220503
  Receipt Date: 20220503
  Transmission Date: 20220721
  Serious: Yes (Other)
  Sender: FDA-Public Use
  Company Number: BE-MICRO LABS LIMITED-ML2022-01787

PATIENT
  Age: 66 Year
  Sex: Male

DRUGS (4)
  1. BIMATOPROST [Suspect]
     Active Substance: BIMATOPROST
  2. BRIMONIDINE TARTRATE/TIMOLOL MALEATE [Suspect]
     Active Substance: BRIMONIDINE TARTRATE\TIMOLOL MALEATE
  3. FLUOROURACIL [Concomitant]
     Active Substance: FLUOROURACIL
     Dosage: SUBCONJUNCTIVAL
  4. MITOMYCIN [Concomitant]
     Active Substance: MITOMYCIN

REACTIONS (3)
  - Ocular surface disease [Recovered/Resolved]
  - Drug ineffective [Unknown]
  - Hyperaemia [Recovered/Resolved]
